FAERS Safety Report 5473717-8 (Version None)
Quarter: 2007Q4

REPORT INFORMATION
  Report Type: 
  Country: None (occurrence: None)
  Receive Date: 20071001
  Receipt Date: 20070920
  Transmission Date: 20080405
  Serious: Yes (Other)
  Sender: FDA-Public Use
  Company Number: JP-PFIZER INC-2007078441

PATIENT
  Age: 25 Year
  Sex: Female

DRUGS (5)
  1. ALPRAZOLAM [Suspect]
     Route: 048
  2. PREDONINE [Concomitant]
  3. METHYCOBAL [Concomitant]
  4. OPIOIDS [Concomitant]
  5. ALL OTHER THERAPEUTIC PRODUCTS [Concomitant]

REACTIONS (1)
  - SUDDEN HEARING LOSS [None]
